FAERS Safety Report 8078374-2 (Version None)
Quarter: 2012Q1

REPORT INFORMATION
  Report Type: 
  Country: None (occurrence: None)
  Receive Date: 20120123
  Receipt Date: 20120109
  Transmission Date: 20120608
  Serious: Yes (Death, Life-Threatening, Hospitalization, Other)
  Sender: FDA-Public Use
  Company Number: 2012MA000338

PATIENT
  Sex: Male
  Weight: 146.0582 kg

DRUGS (72)
  1. APAP TAB [Concomitant]
  2. ALBUTEROL [Concomitant]
  3. EPINEPHRINE [Concomitant]
  4. HYDROCODONE BITARTRATE [Concomitant]
  5. LASIX [Concomitant]
  6. LEVAQUIN [Concomitant]
  7. MAG-OX [Concomitant]
  8. METHOCARBAMOL [Concomitant]
  9. NAPHAZOLINE HCL [Concomitant]
  10. PIPERACILLIN [Concomitant]
  11. PROSCAR [Concomitant]
  12. SALSALATE [Concomitant]
  13. TERAZOSIN HCL [Concomitant]
  14. VARDENAFIL HYDROCHLORIDE (LEVITRA) [Concomitant]
  15. ALDACTONE [Concomitant]
  16. BECLOMETHASONE DIPROPIONATE [Concomitant]
  17. CIPROFLOXACIN [Concomitant]
  18. GUAIFENESIN [Concomitant]
  19. ??ISOLIDE [Concomitant]
  20. OXYCLINE [Concomitant]
  21. SILVER SULFADIAZINE [Concomitant]
  22. TERABINAPINE [Concomitant]
  23. DIGOXIN [Suspect]
     Dosage: 0.25 MG; PO
     Route: 048
     Dates: start: 20001030, end: 20081015
  24. HYDROXIDE [Concomitant]
  25. AMBIEN [Concomitant]
  26. COUMADIN [Concomitant]
  27. ETODOLAC [Concomitant]
  28. LEVOPHED [Concomitant]
  29. ??TADINE [Concomitant]
  30. NOVOLIN 70/30 [Concomitant]
  31. OMEPRAZOLE [Concomitant]
  32. TESTOSTERONE [Concomitant]
  33. TRAZODONE HCL [Concomitant]
  34. ALLOPURINOL [Concomitant]
  35. BUPROPION HCL [Concomitant]
  36. CELEBREX [Concomitant]
  37. DOBUTAMINE HCL [Concomitant]
  38. FANTANYL [Concomitant]
  39. NYSTATIN [Concomitant]
  40. CHLORPHENIRAMINE MALEATE [Concomitant]
  41. DOPAMINE HCL [Concomitant]
  42. ASPIRIN [Concomitant]
  43. GLIPIZIDE [Concomitant]
  44. MILRINONE [Concomitant]
  45. MUCOMYST [Concomitant]
  46. NEFAZODONE HCL [Concomitant]
  47. TAZOBACTAM [Concomitant]
  48. ALUMINUM [Concomitant]
  49. FOSINOPRIL SODIUM [Concomitant]
  50. LISINOPRIL [Concomitant]
  51. MICRO-K [Concomitant]
  52. MTG [Concomitant]
  53. ACETYLCYSTEINE [Concomitant]
  54. PRIMACOR [Concomitant]
  55. VANCOMYCIN [Concomitant]
  56. ZOCOR [Concomitant]
  57. COREG [Concomitant]
  58. DARVOCET [Concomitant]
  59. IBUPROFEN [Concomitant]
  60. INDOMETHACIN [Concomitant]
  61. INSULIN [Concomitant]
  62. PHENERGAN [Concomitant]
  63. POTASSIUM CHLORIDE [Concomitant]
  64. TAMSULOSIN HCL [Concomitant]
  65. TRIAMCINOLONE [Concomitant]
  66. AMOXICILLIN [Concomitant]
  67. LEVALBUTEROL HCL [Concomitant]
  68. METFORMIN HCL [Concomitant]
  69. METOPROLOL TARTRATE [Concomitant]
  70. PENICILLIN [Concomitant]
  71. VASOPRESSIN [Concomitant]
  72. ???YN [Concomitant]

REACTIONS (143)
  - HYPERSOMNIA [None]
  - ARTERIOSCLEROSIS [None]
  - PROSTATIC SPECIFIC ANTIGEN INCREASED [None]
  - URINARY TRACT INFECTION [None]
  - INCREASED UPPER AIRWAY SECRETION [None]
  - RHINORRHOEA [None]
  - STRESS [None]
  - MYOPIA [None]
  - PYREXIA [None]
  - TOOTH EXTRACTION [None]
  - HYPOTENSION [None]
  - CARDIOGENIC SHOCK [None]
  - LACTIC ACIDOSIS [None]
  - DIABETES MELLITUS [None]
  - ARRHYTHMIA [None]
  - OSTEOARTHRITIS [None]
  - BENIGN PROSTATIC HYPERPLASIA [None]
  - INTERVERTEBRAL DISC DEGENERATION [None]
  - ECCHYMOSIS [None]
  - SWELLING [None]
  - EMOTIONAL DISORDER [None]
  - FAECES DISCOLOURED [None]
  - DEPRESSION [None]
  - SINUSITIS [None]
  - HYPERHIDROSIS [None]
  - DERMATITIS BULLOUS [None]
  - PULMONARY ARTERIAL WEDGE PRESSURE INCREASED [None]
  - ACUTE RESPIRATORY FAILURE [None]
  - CARDIORENAL SYNDROME [None]
  - HYPOPERFUSION [None]
  - HAEMODYNAMIC INSTABILITY [None]
  - CONTINUOUS HAEMODIAFILTRATION [None]
  - BLOOD SODIUM DECREASED [None]
  - HYPERTENSION [None]
  - PNEUMONIA [None]
  - MEMORY IMPAIRMENT [None]
  - NIGHT SWEATS [None]
  - TREATMENT FAILURE [None]
  - ORTHOPNOEA [None]
  - ANGINA PECTORIS [None]
  - TOOTHACHE [None]
  - DRY MOUTH [None]
  - JOINT ANKYLOSIS [None]
  - DYSLIPIDAEMIA [None]
  - BLISTER [None]
  - ATRIAL FIBRILLATION [None]
  - RENAL FAILURE ACUTE [None]
  - RESPIRATORY DISTRESS [None]
  - ELECTROCARDIOGRAM QRS COMPLEX PROLONGED [None]
  - MIDDLE INSOMNIA [None]
  - SLEEP APNOEA SYNDROME [None]
  - DYSPNOEA [None]
  - CLAUSTROPHOBIA [None]
  - COUGH [None]
  - WEIGHT CONTROL [None]
  - OROPHARYNGEAL PAIN [None]
  - THINKING ABNORMAL [None]
  - CARDIAC MURMUR [None]
  - LEFT VENTRICULAR DYSFUNCTION [None]
  - COLONIC POLYP [None]
  - MARITAL PROBLEM [None]
  - URINARY INCONTINENCE [None]
  - DIVERTICULUM [None]
  - COLON NEOPLASM [None]
  - MOOD SWINGS [None]
  - DIVERTICULITIS [None]
  - TACHYPNOEA [None]
  - CENTRAL VENOUS CATHETERISATION [None]
  - CARDIAC FAILURE [None]
  - METABOLIC ACIDOSIS [None]
  - RENAL TUBULAR NECROSIS [None]
  - CITROBACTER INFECTION [None]
  - FUNGAEMIA [None]
  - TREATMENT NONCOMPLIANCE [None]
  - SLEEP DISORDER [None]
  - DYSPNOEA EXERTIONAL [None]
  - INJURY [None]
  - HYPERVIGILANCE [None]
  - TESTICULAR FAILURE [None]
  - WHEEZING [None]
  - DIABETIC RETINOPATHY [None]
  - URINARY TRACT OBSTRUCTION [None]
  - VISUAL ACUITY REDUCED [None]
  - PERSONALITY CHANGE [None]
  - SKIN ULCER [None]
  - FATIGUE [None]
  - RESPIRATORY FAILURE [None]
  - AZOTAEMIA [None]
  - CARDIAC FAILURE CONGESTIVE [None]
  - URINARY HESITATION [None]
  - POLLAKIURIA [None]
  - FLUID RETENTION [None]
  - NIGHTMARE [None]
  - MITRAL VALVE INCOMPETENCE [None]
  - BRONCHITIS [None]
  - GRUNTING [None]
  - CHOKING [None]
  - CELLULITIS [None]
  - RENAL FAILURE CHRONIC [None]
  - CORONARY ARTERY DISEASE [None]
  - ANURIA [None]
  - CENTRAL VENOUS PRESSURE INCREASED [None]
  - PULMONARY OEDEMA [None]
  - OBESITY [None]
  - OEDEMA PERIPHERAL [None]
  - POST-TRAUMATIC STRESS DISORDER [None]
  - MULTIPLE ALLERGIES [None]
  - ERECTILE DYSFUNCTION [None]
  - BACK PAIN [None]
  - ANDROGEN DEFICIENCY [None]
  - PERIORBITAL DISORDER [None]
  - SINUS HEADACHE [None]
  - UPPER-AIRWAY COUGH SYNDROME [None]
  - PRODUCTIVE COUGH [None]
  - NASOPHARYNGITIS [None]
  - HAEMOPTYSIS [None]
  - MUSCULOSKELETAL CHEST PAIN [None]
  - MYOCARDIAL INFARCTION [None]
  - TOOTH DISORDER [None]
  - HYPOVOLAEMIA [None]
  - HYPOKALAEMIA [None]
  - ISCHAEMIC HEPATITIS [None]
  - SNORING [None]
  - NOCTURIA [None]
  - CONGESTIVE CARDIOMYOPATHY [None]
  - HAEMATURIA [None]
  - NASAL CONGESTION [None]
  - DIZZINESS [None]
  - RHINITIS ALLERGIC [None]
  - IRRITABILITY [None]
  - SNEEZING [None]
  - EYE PRURITUS [None]
  - RASH [None]
  - RASH MACULO-PAPULAR [None]
  - CATARACT [None]
  - DIABETES MELLITUS INADEQUATE CONTROL [None]
  - HEPATIC ENZYME INCREASED [None]
  - PULMONARY HYPERTENSION [None]
  - WOUND DRAINAGE [None]
  - BRADYCARDIA [None]
  - HYPERKALAEMIA [None]
  - ANAEMIA [None]
  - ACUTE RESPIRATORY DISTRESS SYNDROME [None]
